FAERS Safety Report 9522662 (Version 3)
Quarter: 2013Q3

REPORT INFORMATION
  Report Type: Report from Study
  Country: US (occurrence: US)
  Receive Date: 20130913
  Receipt Date: 20130920
  Transmission Date: 20140515
  Serious: Yes (Hospitalization)
  Sender: FDA-Public Use
  Company Number: US-ACTELION-A-US2013-88485

PATIENT
  Age: 74 Year
  Sex: Male

DRUGS (3)
  1. VENTAVIS [Suspect]
     Indication: PULMONARY HYPERTENSION
     Dosage: 5 UNK, UNK
     Route: 055
     Dates: start: 20130831
  2. VENTAVIS [Suspect]
     Dosage: 2.5 MCG, BID
     Route: 055
  3. SILDENAFIL [Concomitant]
     Dosage: UNK

REACTIONS (5)
  - Depression [Recovering/Resolving]
  - Feeling abnormal [Recovering/Resolving]
  - Hallucination [Unknown]
  - Confusional state [Unknown]
  - Suicidal ideation [Unknown]
